FAERS Safety Report 8276014-0 (Version None)
Quarter: 2012Q2

REPORT INFORMATION
  Report Type: 
  Country: None (occurrence: None)
  Receive Date: 20120406
  Receipt Date: 20120330
  Transmission Date: 20120825
  Serious: Yes (Other)
  Sender: FDA-Public Use
  Company Number: DSA_55868_2012

PATIENT
  Sex: Male

DRUGS (2)
  1. XENAZINE [Suspect]
     Indication: CHOREA
     Dosage: FREQUENCY UNKNOWN ORAL), (AT NIGHT; FREQUENCY UNKNOWN ORAL)
     Route: 048
     Dates: start: 20120221
  2. XENAZINE [Suspect]
     Indication: CHOREA
     Dosage: FREQUENCY UNKNOWN ORAL), (AT NIGHT; FREQUENCY UNKNOWN ORAL)
     Route: 048
     Dates: end: 20120201

REACTIONS (2)
  - HIP ARTHROPLASTY [None]
  - MOVEMENT DISORDER [None]
